FAERS Safety Report 20041462 (Version 2)
Quarter: 2021Q4

REPORT INFORMATION
  Report Type: Report from Study
  Country: CO (occurrence: CO)
  Receive Date: 20211108
  Receipt Date: 20211108
  Transmission Date: 20220303
  Serious: Yes (Other)
  Sender: FDA-Public Use
  Company Number: CO-ABBVIE-21K-036-4125890-00

PATIENT
  Sex: Male
  Weight: 57 kg

DRUGS (2)
  1. VENCLEXTA [Suspect]
     Active Substance: VENETOCLAX
     Indication: Chronic lymphocytic leukaemia
     Route: 048
     Dates: start: 20210106
  2. INFLUENZA VIRUS VACCINE [Concomitant]
     Active Substance: INFLUENZA VIRUS VACCINE
     Indication: Product used for unknown indication
     Dates: start: 202110, end: 202110

REACTIONS (21)
  - Asphyxia [Recovering/Resolving]
  - Influenza like illness [Recovering/Resolving]
  - Respiratory tract congestion [Unknown]
  - Myalgia [Recovering/Resolving]
  - Arthralgia [Recovering/Resolving]
  - Pyrexia [Recovered/Resolved]
  - Malaise [Not Recovered/Not Resolved]
  - Eye pain [Not Recovered/Not Resolved]
  - Dysphonia [Not Recovered/Not Resolved]
  - Chest discomfort [Recovering/Resolving]
  - Discomfort [Not Recovered/Not Resolved]
  - Dyspnoea [Recovering/Resolving]
  - Rhinitis [Recovering/Resolving]
  - Rhinorrhoea [Recovering/Resolving]
  - Headache [Recovered/Resolved]
  - Cough [Not Recovered/Not Resolved]
  - Chills [Not Recovered/Not Resolved]
  - Fatigue [Recovering/Resolving]
  - Respiratory disorder [Recovering/Resolving]
  - Headache [Recovering/Resolving]
  - Hair colour changes [Recovering/Resolving]

NARRATIVE: CASE EVENT DATE: 20210101
